APPROVED DRUG PRODUCT: ALCLOMETASONE DIPROPIONATE
Active Ingredient: ALCLOMETASONE DIPROPIONATE
Strength: 0.05%
Dosage Form/Route: CREAM;TOPICAL
Application: A076973 | Product #001 | TE Code: AB
Applicant: FOUGERA PHARMACEUTICALS INC
Approved: Jul 12, 2005 | RLD: No | RS: Yes | Type: RX